FAERS Safety Report 9370619 (Version 1)
Quarter: 2013Q2

REPORT INFORMATION
  Report Type: Spontaneous
  Country: NL (occurrence: NL)
  Receive Date: 20130626
  Receipt Date: 20130626
  Transmission Date: 20140414
  Serious: Yes (Disabling, Other)
  Sender: FDA-Public Use
  Company Number: NL-BAXTER-2013BAX023176

PATIENT
  Sex: Male

DRUGS (1)
  1. ENDOXAN I.V., POEDER VOOR OPLOSSING VOOR INJECTIE 200, 500, 1000 MG [Suspect]
     Indication: NON-HODGKIN^S LYMPHOMA
     Dates: end: 20090324

REACTIONS (3)
  - Bacterial infection [Unknown]
  - Wound [Unknown]
  - Extravasation [Recovered/Resolved]
